FAERS Safety Report 5764657-5 (Version None)
Quarter: 2008Q2

REPORT INFORMATION
  Report Type: 
  Country: None (occurrence: None)
  Receive Date: 20080611
  Receipt Date: 20080605
  Transmission Date: 20081010
  Serious: Yes (Other)
  Sender: FDA-Public Use
  Company Number: PHNU2008DE02018

PATIENT
  Sex: Male

DRUGS (2)
  1. CLOZAPINE [Suspect]
     Dosage: UP TO 475 MG/DAY
     Route: 048
     Dates: start: 20080303
  2. RISPERIDONE [Concomitant]

REACTIONS (7)
  - ELECTROCARDIOGRAM ABNORMAL [None]
  - FATIGUE [None]
  - PERICARDIAL EFFUSION [None]
  - PLEURAL EFFUSION [None]
  - POLYSEROSITIS [None]
  - TACHYCARDIA [None]
  - ULTRASOUND SCAN ABNORMAL [None]
